FAERS Safety Report 5446335-5 (Version None)
Quarter: 2007Q3

REPORT INFORMATION
  Report Type: 
  Country: None (occurrence: None)
  Receive Date: 20070907
  Receipt Date: 20070904
  Transmission Date: 20080115
  Serious: Yes (Death)
  Sender: FDA-Public Use
  Company Number: A0654679A

PATIENT
  Sex: Male

DRUGS (1)
  1. COREG [Suspect]
     Indication: DRUG USE FOR UNKNOWN INDICATION
     Dosage: 31.25MG UNKNOWN
     Route: 048

REACTIONS (3)
  - MULTIPLE FRACTURES [None]
  - MYOCARDIAL INFARCTION [None]
  - RESORPTION BONE INCREASED [None]
